FAERS Safety Report 9911614 (Version 2)
Quarter: 2014Q1

REPORT INFORMATION
  Report Type: Spontaneous
  Country: DE (occurrence: DE)
  Receive Date: 20140219
  Receipt Date: 20140219
  Transmission Date: 20141002
  Serious: Yes (Other)
  Sender: FDA-Public Use
  Company Number: GXKR2013DE003281

PATIENT
  Age: 61 Year
  Sex: Female
  Weight: 87 kg

DRUGS (10)
  1. ANASTROZOL ? 1 A PHARMA [Suspect]
     Indication: BREAST CANCER
     Dosage: 1 MG, UNK
     Route: 048
     Dates: start: 20130821, end: 20130924
  2. AMIODARON - 1 A PHARMA [Concomitant]
     Dosage: 200 MG, QD
     Route: 048
  3. PANTOPRAZOL 1A PHARMA [Concomitant]
     Dosage: 20 MG, QD
     Route: 048
  4. PHENPRO [Concomitant]
  5. SPIRONOLACTON HEUMANN [Concomitant]
     Dosage: 25 MG, QD
     Route: 048
  6. TORASEMID-1A PHARMA [Concomitant]
     Dosage: 10 MG, QD
     Route: 048
  7. CONCOR [Concomitant]
     Dosage: 5 MG, QD
     Route: 048
  8. DELIX [Concomitant]
     Dosage: 1.25 MG, QD
     Route: 048
  9. VITAMIN B COMPLEX [Concomitant]
     Dosage: 1 DF, BID
     Route: 048
  10. AEQUAMEN [Concomitant]
     Dosage: 1 DF, TID
     Route: 048

REACTIONS (6)
  - Paralysis [Not Recovered/Not Resolved]
  - Walking disability [Unknown]
  - Dizziness [Not Recovered/Not Resolved]
  - Dyspnoea [Not Recovered/Not Resolved]
  - Swelling [Not Recovered/Not Resolved]
  - Musculoskeletal stiffness [Unknown]
